FAERS Safety Report 7233161-X (Version None)
Quarter: 2011Q1

REPORT INFORMATION
  Report Type: 
  Country: None (occurrence: None)
  Receive Date: 20110119
  Receipt Date: 20110103
  Transmission Date: 20110831
  Serious: Yes (Congenital Anomaly)
  Sender: FDA-Public Use
  Company Number: A0679384A

PATIENT
  Sex: Female

DRUGS (6)
  1. SYNTHROID [Concomitant]
  2. REGLAN [Concomitant]
  3. FOLATE [Concomitant]
  4. PAXIL [Suspect]
     Indication: DEPRESSION
     Dosage: 20MG UNKNOWN
  5. PRENATAL VITAMINS [Concomitant]
  6. INSULIN [Concomitant]

REACTIONS (3)
  - CARDIAC FAILURE [None]
  - DRUG EXPOSURE DURING PREGNANCY [None]
  - VENTRICULAR SEPTAL DEFECT [None]
